FAERS Safety Report 4867318-X (Version None)
Quarter: 2005Q4

REPORT INFORMATION
  Report Type: 
  Country: None (occurrence: None)
  Receive Date: 20051228
  Receipt Date: 20051219
  Transmission Date: 20060501
  Serious: Yes (Other)
  Sender: FDA-Public Use
  Company Number: AU-ROCHE-429052

PATIENT
  Age: 42 Year

DRUGS (3)
  1. LARIAM [Suspect]
     Indication: PROPHYLAXIS
     Route: 048
     Dates: start: 20040316, end: 20040425
  2. HAVRIX [Concomitant]
  3. UNSPECIFIED DRUG [Concomitant]
     Dosage: REPORTED AS ADT.

REACTIONS (9)
  - DIZZINESS [None]
  - DYSPHAGIA [None]
  - HALLUCINATION [None]
  - MOUTH ULCERATION [None]
  - NAUSEA [None]
  - PHARYNGOLARYNGEAL PAIN [None]
  - PRURITUS [None]
  - REFLUX OESOPHAGITIS [None]
  - VOMITING [None]
